FAERS Safety Report 14618485 (Version 2)
Quarter: 2018Q2

REPORT INFORMATION
  Report Type: Spontaneous
  Country: GB (occurrence: GB)
  Receive Date: 20180309
  Receipt Date: 20180406
  Transmission Date: 20180711
  Serious: Yes (Death)
  Sender: FDA-Public Use
  Company Number: GB-LUNDBECK-DKLU2045379

PATIENT
  Age: 7 Week
  Sex: Male

DRUGS (7)
  1. PHENOBARBITAL. [Concomitant]
     Active Substance: PHENOBARBITAL
     Indication: PRODUCT USED FOR UNKNOWN INDICATION
     Route: 065
     Dates: start: 20170801
  2. PHENYTOIN. [Concomitant]
     Active Substance: PHENYTOIN
     Indication: PRODUCT USED FOR UNKNOWN INDICATION
     Route: 065
     Dates: start: 20170811
  3. VIGABATRIN (FOR ORAL SOLUTION) [Suspect]
     Active Substance: VIGABATRIN
     Route: 048
     Dates: start: 20170817, end: 20170916
  4. PYRIDOXINE [Concomitant]
     Active Substance: PYRIDOXINE
     Indication: PRODUCT USED FOR UNKNOWN INDICATION
     Route: 065
     Dates: start: 20170811
  5. VIGABATRIN (FOR ORAL SOLUTION) [Suspect]
     Active Substance: VIGABATRIN
     Indication: CONVULSION NEONATAL
     Route: 048
  6. LEVOTHYROXINE SODIUM. [Concomitant]
     Active Substance: LEVOTHYROXINE SODIUM
     Indication: PRODUCT USED FOR UNKNOWN INDICATION
     Route: 065
     Dates: start: 20170811
  7. LEVETIRACETAM. [Concomitant]
     Active Substance: LEVETIRACETAM
     Indication: PRODUCT USED FOR UNKNOWN INDICATION
     Route: 065
     Dates: start: 20170811

REACTIONS (1)
  - Necrotising colitis [Fatal]

NARRATIVE: CASE EVENT DATE: 20170915
